FAERS Safety Report 10018947 (Version 1)
Quarter: 2014Q1

REPORT INFORMATION
  Report Type: Spontaneous
  Country: US (occurrence: None)
  Receive Date: 20140314
  Receipt Date: 20140314
  Transmission Date: 20141002
  Serious: Yes (Other)
  Sender: FDA-Public Use
  Company Number: None

PATIENT
  Sex: Male
  Weight: 97.98 kg

DRUGS (2)
  1. DOXYCYLINE [Suspect]
     Indication: ACNE CYSTIC
     Route: 048
     Dates: start: 20130102
  2. MINOCYCLINE [Suspect]
     Indication: ACNE CYSTIC
     Route: 048
     Dates: start: 201212

REACTIONS (2)
  - Abdominal discomfort [None]
  - Headache [None]
